FAERS Safety Report 9525739 (Version 1)
Quarter: 2013Q1

REPORT INFORMATION
  Report Type: Spontaneous
  Country: US (occurrence: None)
  Receive Date: 20130314
  Receipt Date: 20130314
  Transmission Date: 20140127
  Serious: Yes (Other)
  Sender: FDA-Public Use
  Company Number: 1302USA002563

PATIENT
  Age: 59 Year
  Sex: Female
  Weight: 47.6 kg

DRUGS (4)
  1. VICTRELIS [Suspect]
     Indication: HEPATITIS C
     Dosage: UNK, ORAL
     Route: 048
  2. PEGINTRON [Suspect]
  3. RIBAVIRIN [Suspect]
  4. TYLENOL (ACETAMINOPHEN) [Concomitant]

REACTIONS (1)
  - Full blood count decreased [None]
